FAERS Safety Report 7794918-X (Version None)
Quarter: 2011Q4

REPORT INFORMATION
  Report Type: 
  Country: None (occurrence: None)
  Receive Date: 20111004
  Receipt Date: 20110926
  Transmission Date: 20120403
  Serious: Yes (Other)
  Sender: FDA-Public Use
  Company Number: GB-BAXTER-2011BH030614

PATIENT

DRUGS (2)
  1. PREDNISOLONE [Suspect]
     Indication: OCULAR PEMPHIGOID
     Route: 042
  2. CYCLOPHOSPHAMIDE [Suspect]
     Indication: OCULAR PEMPHIGOID
     Route: 065

REACTIONS (4)
  - PNEUMONIA CYTOMEGALOVIRAL [None]
  - RESPIRATORY FAILURE [None]
  - LYMPHOPENIA [None]
  - PNEUMOCYSTIS JIROVECI PNEUMONIA [None]
